FAERS Safety Report 8607829-4 (Version None)
Quarter: 2012Q3

REPORT INFORMATION
  Report Type: 
  Country: None (occurrence: None)
  Receive Date: 20120821
  Receipt Date: 20120815
  Transmission Date: 20120928
  Serious: Yes (Other)
  Sender: FDA-Public Use
  Company Number: PHHY2012BR071591

PATIENT
  Age: 67 Year
  Sex: Female

DRUGS (5)
  1. CLONAZEPAM [Concomitant]
     Indication: SLEEP DISORDER
     Dosage: 2 MG, QHS
  2. SYNTHROID [Concomitant]
     Indication: THYROID DISORDER
     Dosage: 88 UG, QD
  3. CALCIUM CARBONATE [Concomitant]
     Indication: BONE DISORDER
     Dosage: 500 MG, QHS
  4. FORMOTEROL FUMARATE [Suspect]
     Indication: PNEUMONIA
  5. FORMOTEROL FUMARATE [Suspect]
     Indication: BRONCHITIS
     Dosage: 1 DF, DAILY

REACTIONS (3)
  - BRONCHIAL CARCINOMA [None]
  - DRUG INEFFECTIVE [None]
  - COUGH [None]
